FAERS Safety Report 13554252 (Version 1)
Quarter: 2017Q2

REPORT INFORMATION
  Report Type: Spontaneous
  Country: US (occurrence: US)
  Receive Date: 20170517
  Receipt Date: 20170517
  Transmission Date: 20170830
  Serious: Yes (Hospitalization)
  Sender: FDA-Public Use
  Company Number: US-GLAXOSMITHKLINE-US2017069763

PATIENT
  Age: 62 Year
  Sex: Female

DRUGS (1)
  1. CITRUCEL [Suspect]
     Active Substance: METHYLCELLULOSE (4000 MPA.S)
     Indication: DIARRHOEA
     Dosage: UNK

REACTIONS (3)
  - Oesophageal spasm [Unknown]
  - Off label use [Unknown]
  - Gastrooesophageal reflux disease [Unknown]
